FAERS Safety Report 21553658 (Version 2)
Quarter: 2025Q3

REPORT INFORMATION
  Report Type: Report from Study
  Country: US (occurrence: US)
  Receive Date: 20221104
  Receipt Date: 20250714
  Transmission Date: 20251020
  Serious: Yes (Other)
  Sender: EMD SERONO INC
  Company Number: US-Merck Healthcare KGaA-9356883

PATIENT
  Age: 48 Year
  Sex: Male
  Weight: 132 kg

DRUGS (2)
  1. REBIF [Suspect]
     Active Substance: INTERFERON BETA-1A
     Indication: Multiple sclerosis
     Dates: start: 2014
  2. REBIF [Suspect]
     Active Substance: INTERFERON BETA-1A
     Dates: start: 20150312

REACTIONS (6)
  - Blepharospasm [Recovered/Resolved]
  - Eyelid sensory disorder [Unknown]
  - Hypoaesthesia oral [Recovered/Resolved]
  - Seizure [Unknown]
  - Multiple sclerosis relapse [Recovered/Resolved]
  - Multiple sclerosis [Unknown]

NARRATIVE: CASE EVENT DATE: 20220623
